FAERS Safety Report 7903554-3 (Version None)
Quarter: 2011Q4

REPORT INFORMATION
  Report Type: 
  Country: None (occurrence: None)
  Receive Date: 20111109
  Receipt Date: 20111109
  Transmission Date: 20120403
  Serious: Yes (Hospitalization)
  Sender: FDA-Public Use
  Company Number: None

PATIENT
  Age: 78 Year
  Sex: Male

DRUGS (1)
  1. LUCENTIS [Suspect]
     Indication: AGE-RELATED MACULAR DEGENERATION
     Dosage: 0.5 MG
     Route: 031
     Dates: start: 20080522, end: 20111101

REACTIONS (3)
  - GAIT DISTURBANCE [None]
  - HEADACHE [None]
  - CEREBRAL HAEMORRHAGE [None]
